FAERS Safety Report 8437859-7 (Version None)
Quarter: 2012Q2

REPORT INFORMATION
  Report Type: 
  Country: None (occurrence: None)
  Receive Date: 20120614
  Receipt Date: 20120521
  Transmission Date: 20120825
  Serious: No
  Sender: FDA-Public Use
  Company Number: US-AMGEN-USASP2012027491

PATIENT
  Sex: Male
  Weight: 81.179 kg

DRUGS (2)
  1. XGEVA [Suspect]
     Indication: METASTASES TO BONE
     Dosage: UNK
  2. ELIGARD [Concomitant]
     Dosage: UNK
     Dates: start: 20120112

REACTIONS (2)
  - PAROTITIS [None]
  - ORAL DISCOMFORT [None]
